FAERS Safety Report 9596781 (Version 2)
Quarter: 2013Q4

REPORT INFORMATION
  Report Type: Report from Study
  Country: BR (occurrence: BR)
  Receive Date: 20131004
  Receipt Date: 20131206
  Transmission Date: 20140711
  Serious: Yes (Hospitalization, Other)
  Sender: FDA-Public Use
  Company Number: PHHY2013BR111177

PATIENT
  Age: 69 Year
  Sex: Female

DRUGS (6)
  1. GALVUS MET [Suspect]
     Indication: BLOOD GLUCOSE ABNORMAL
     Dosage: 1 DF (850/50 MG), DAILY
     Route: 048
  2. DIOVAN [Suspect]
     Indication: HYPERTENSION
     Dosage: 160 UNK, UNK
  3. DIOVAN [Suspect]
     Dosage: 320 MG, DAILY
     Route: 048
     Dates: end: 201305
  4. GLIFAGE [Suspect]
     Indication: GLUCOSE TOLERANCE IMPAIRED
     Dosage: 1 DF, DAILY
  5. AAS [Concomitant]
     Indication: ANTICOAGULANT THERAPY
     Dosage: 100 MG, DAILY
     Route: 048
  6. SELOZOK [Concomitant]
     Indication: HYPERTENSION
     Dosage: 50 MG, DAILY
     Route: 048

REACTIONS (4)
  - Infarction [Recovered/Resolved]
  - Hypertension [Recovered/Resolved]
  - Muscular weakness [Recovering/Resolving]
  - Blood cholesterol increased [Recovering/Resolving]
